FAERS Safety Report 6314896-X (Version None)
Quarter: 2009Q3

REPORT INFORMATION
  Report Type: 
  Country: None (occurrence: None)
  Receive Date: 20090819
  Receipt Date: 20090814
  Transmission Date: 20100115
  Serious: Yes (Life-Threatening, Hospitalization)
  Sender: FDA-Public Use
  Company Number: A0802856A

PATIENT
  Sex: Female
  Weight: 79 kg

DRUGS (13)
  1. NIQUITIN [Suspect]
     Indication: SMOKING CESSATION THERAPY
     Dosage: 21MG PER DAY
     Route: 062
     Dates: start: 20081201
  2. LITHIUM [Suspect]
     Indication: DRUG USE FOR UNKNOWN INDICATION
     Route: 065
  3. DEPAKENE [Concomitant]
     Dosage: 500MG THREE TIMES PER DAY
  4. OMEPRAZOL [Concomitant]
     Dosage: 40MG PER DAY
  5. OLCADIL [Concomitant]
     Dosage: 2MG TWICE PER DAY
  6. SEROQUEL [Concomitant]
     Dosage: 25MG TWICE PER DAY
  7. ENALAPRIL MALEATE [Concomitant]
     Dosage: 20MG TWICE PER DAY
  8. BUDESONIDE [Concomitant]
  9. FORMOTEROL FUMARATE [Concomitant]
  10. SPIRIVA [Concomitant]
     Dosage: 18MCG PER DAY
  11. OSCAL D [Concomitant]
  12. LOVASTATIN [Concomitant]
     Dosage: 20MG AT NIGHT
  13. UNSPECIFIED MEDICATION [Concomitant]

REACTIONS (6)
  - CEREBROVASCULAR ACCIDENT [None]
  - DRUG ADMINISTRATION ERROR [None]
  - DRUG INTERACTION [None]
  - EPILEPSY [None]
  - HEMIPLEGIA [None]
  - RENAL DISORDER [None]
